FAERS Safety Report 4504433-4 (Version None)
Quarter: 2004Q4

REPORT INFORMATION
  Report Type: 
  Country: None (occurrence: None)
  Receive Date: 20041117
  Receipt Date: 20041117
  Transmission Date: 20050328
  Serious: Yes (Hospitalization, Other)
  Sender: FDA-Public Use
  Company Number: None

PATIENT
  Age: 52 Year
  Sex: Male
  Weight: 74 kg

DRUGS (9)
  1. PREDNISONE [Suspect]
     Indication: RESPIRATORY DISORDER
     Dates: end: 20041015
  2. HUMULIN 70/30 [Concomitant]
  3. REMERON [Concomitant]
  4. TRAZODONE HCL [Concomitant]
  5. ZOCOR [Concomitant]
  6. ALBUTEROL [Concomitant]
  7. THIAMINE [Concomitant]
  8. MULTI-VITAMIN [Concomitant]
  9. ZOCOR [Concomitant]

REACTIONS (4)
  - ALCOHOL WITHDRAWAL SYNDROME [None]
  - HALLUCINATION, VISUAL [None]
  - MENTAL STATUS CHANGES [None]
  - PSYCHOTIC DISORDER [None]
